FAERS Safety Report 14593041 (Version 1)
Quarter: 2018Q1

REPORT INFORMATION
  Report Type: Spontaneous
  Country: US (occurrence: US)
  Receive Date: 20180302
  Receipt Date: 20180302
  Transmission Date: 20180509
  Serious: No
  Sender: FDA-Public Use
  Company Number: US-ENDO PHARMACEUTICALS INC-2017-007348

PATIENT
  Age: 40 Year
  Sex: Male

DRUGS (1)
  1. XIAFLEX [Suspect]
     Active Substance: COLLAGENASE CLOSTRIDIUM HISTOLYTICUM
     Indication: DUPUYTREN^S CONTRACTURE
     Dosage: ONE INJECTION INTO THE FOURTH AND FIFTH DIGITS OF RIGHT HAND
     Route: 026
     Dates: start: 20171101

REACTIONS (6)
  - Contusion [Recovered/Resolved]
  - Muscle strain [Not Recovered/Not Resolved]
  - Pain in extremity [Recovered/Resolved]
  - Lymphadenopathy [Not Recovered/Not Resolved]
  - Burning sensation [Recovered/Resolved]
  - Soft tissue swelling [Recovered/Resolved]

NARRATIVE: CASE EVENT DATE: 201711
